FAERS Safety Report 7678032-X (Version None)
Quarter: 2011Q3

REPORT INFORMATION
  Report Type: 
  Country: None (occurrence: None)
  Receive Date: 20110811
  Receipt Date: 20110803
  Transmission Date: 20111222
  Serious: Yes (Other)
  Sender: FDA-Public Use
  Company Number: FR-GLAXOSMITHKLINE-B0736777A

PATIENT
  Sex: Male
  Weight: 110 kg

DRUGS (2)
  1. CEFTAZIDIME SODIUM [Suspect]
     Indication: LUNG DISORDER
     Dosage: 6G PER DAY
     Route: 042
     Dates: start: 20101206, end: 20101216
  2. CIPROFLOXACIN [Concomitant]
     Indication: LUNG DISORDER
     Route: 065
     Dates: start: 20101206

REACTIONS (6)
  - DRUG LEVEL INCREASED [None]
  - ENCEPHALOPATHY [None]
  - OVERDOSE [None]
  - URTICARIA [None]
  - SOMNOLENCE [None]
  - HYPERSENSITIVITY [None]
